FAERS Safety Report 21069344 (Version 2)
Quarter: 2024Q3

REPORT INFORMATION
  Report Type: Spontaneous
  Country: US (occurrence: US)
  Receive Date: 20220712
  Receipt Date: 20240722
  Transmission Date: 20241017
  Serious: No
  Sender: ASTELLAS
  Company Number: US-ASTELLAS-2022US001831

PATIENT
  Age: 95 Year
  Sex: Female

DRUGS (2)
  1. MYRBETRIQ [Suspect]
     Active Substance: MIRABEGRON
     Indication: Product used for unknown indication
     Route: 065
     Dates: start: 202108
  2. MYRBETRIQ [Suspect]
     Active Substance: MIRABEGRON
     Dosage: 50 MG (TWO 25 MG TABLETS), ONCE DAILY
     Route: 065
     Dates: start: 202112

REACTIONS (2)
  - Nocturia [Unknown]
  - Therapeutic product effect incomplete [Unknown]
